FAERS Safety Report 5415967-2 (Version None)
Quarter: 2007Q3

REPORT INFORMATION
  Report Type: 
  Country: None (occurrence: None)
  Receive Date: 20070718
  Receipt Date: 20070102
  Transmission Date: 20080115
  Serious: Yes (Other)
  Sender: FDA-Public Use
  Company Number: 2007002231

PATIENT
  Age: 50 Year
  Sex: Female
  Weight: 61.7 kg

DRUGS (2)
  1. CELEBREX [Suspect]
     Indication: BACK INJURY
     Dosage: 200 MG (200 MG, 1 IN 1 D)
     Dates: start: 19990101
  2. CELEBREX [Suspect]
     Indication: INJURY
     Dosage: 200 MG (200 MG, 1 IN 1 D)
     Dates: start: 19990101

REACTIONS (5)
  - ANXIETY [None]
  - CEREBROVASCULAR ACCIDENT [None]
  - DEPRESSION [None]
  - HYPERTENSION [None]
  - MYOCARDIAL INFARCTION [None]
